FAERS Safety Report 24607841 (Version 1)
Quarter: 2024Q4

REPORT INFORMATION
  Report Type: Spontaneous
  Country: US (occurrence: None)
  Receive Date: 20241111
  Receipt Date: 20241111
  Transmission Date: 20250114
  Serious: Yes (Disabling, Other)
  Sender: Public
  Company Number: None

PATIENT
  Age: 6 Year
  Sex: Female
  Weight: 19.35 kg

DRUGS (8)
  1. TOPIRAMATE [Suspect]
     Active Substance: TOPIRAMATE
     Indication: Epilepsy
     Dosage: 4 25 ,G/ML TWICE A DAY ORL
     Route: 048
  2. OXCARBAZEPINE [Concomitant]
  3. DIASTAT [Concomitant]
     Active Substance: DIAZEPAM
  4. Vitamin c [Concomitant]
  5. multivitamin chew [Concomitant]
  6. TYLENOL [Concomitant]
  7. MOTRIN [Concomitant]
     Active Substance: IBUPROFEN
  8. Dimitap [Concomitant]

REACTIONS (7)
  - Gastrointestinal disorder [None]
  - Anhidrosis [None]
  - Dyskinesia [None]
  - Decreased appetite [None]
  - Confusional state [None]
  - Headache [None]
  - Cataract [None]

NARRATIVE: CASE EVENT DATE: 20241104
